FAERS Safety Report 8308871-3 (Version None)
Quarter: 2012Q2

REPORT INFORMATION
  Report Type: 
  Country: None (occurrence: None)
  Receive Date: 20120424
  Receipt Date: 20120419
  Transmission Date: 20120825
  Serious: Yes (Hospitalization, Other)
  Sender: FDA-Public Use
  Company Number: US-PFIZER INC-2008028911

PATIENT
  Sex: Male

DRUGS (7)
  1. STARLIX [Concomitant]
     Indication: DIABETES MELLITUS
  2. ACETYLSALICYLIC ACID SRT [Concomitant]
  3. NEURONTIN [Concomitant]
  4. MOBIC [Concomitant]
     Indication: ANTIINFLAMMATORY THERAPY
  5. LIPITOR [Suspect]
     Indication: BLOOD CHOLESTEROL INCREASED
     Dosage: 20 MG, 1X/DAY
     Dates: start: 20070801
  6. PRILOSEC [Concomitant]
     Dosage: 20 MG, 1X/DAY
  7. ATENOLOL [Concomitant]
     Indication: HYPERTENSION
     Dosage: 50 MG, 1X/DAY

REACTIONS (21)
  - CARDIAC DISORDER [None]
  - COGNITIVE DISORDER [None]
  - DISTURBANCE IN ATTENTION [None]
  - TENDON PAIN [None]
  - MYALGIA [None]
  - ARTERIAL OCCLUSIVE DISEASE [None]
  - MEMORY IMPAIRMENT [None]
  - INSOMNIA [None]
  - DIZZINESS [None]
  - DEPRESSION [None]
  - ATRIAL FIBRILLATION [None]
  - CONSTIPATION [None]
  - SYNCOPE [None]
  - ASTHENIA [None]
  - FATIGUE [None]
  - WEIGHT INCREASED [None]
  - MUSCULOSKELETAL PAIN [None]
  - ABDOMINAL DISCOMFORT [None]
  - ARRHYTHMIA [None]
  - ARTHRALGIA [None]
  - HEADACHE [None]
